FAERS Safety Report 10383911 (Version 3)
Quarter: 2014Q3

REPORT INFORMATION
  Report Type: Spontaneous
  Country: US (occurrence: US)
  Receive Date: 20140814
  Receipt Date: 20140911
  Transmission Date: 20150326
  Serious: Yes (Other)
  Sender: FDA-Public Use
  Company Number: US-AMGEN-USASP2014062044

PATIENT
  Age: 72 Year
  Sex: Female
  Weight: 72.11 kg

DRUGS (7)
  1. SYNTHROID [Concomitant]
     Active Substance: LEVOTHYROXINE SODIUM
     Indication: HYPOTHYROIDISM
     Dosage: 88 MUG, QD
     Route: 048
  2. PROLIA [Suspect]
     Active Substance: DENOSUMAB
     Dosage: UNK
     Route: 058
  3. PROLIA [Suspect]
     Active Substance: DENOSUMAB
     Dosage: UNK
     Route: 058
  4. PROLIA [Suspect]
     Active Substance: DENOSUMAB
     Dosage: 60 MG/ML, Q6MO
     Route: 058
     Dates: start: 20110926, end: 20140328
  5. ESTER-C                            /00008001/ [Concomitant]
     Dosage: 500 TO 550 MG, QD
     Route: 048
  6. PROLIA [Suspect]
     Active Substance: DENOSUMAB
     Indication: OSTEOPOROSIS POSTMENOPAUSAL
     Dosage: 60 MG/ML, Q6MO
     Route: 058
     Dates: start: 20110926, end: 20140328
  7. PROLIA [Suspect]
     Active Substance: DENOSUMAB
     Dosage: UNK
     Route: 058

REACTIONS (13)
  - Drug hypersensitivity [Unknown]
  - Exostosis [Unknown]
  - Osteonecrosis of jaw [Not Recovered/Not Resolved]
  - Aphthous stomatitis [Unknown]
  - Muscular weakness [Not Recovered/Not Resolved]
  - Ear discomfort [Recovering/Resolving]
  - Cerumen impaction [Recovered/Resolved]
  - Hypoacusis [Recovered/Resolved]
  - Cough [Not Recovered/Not Resolved]
  - Tongue disorder [Unknown]
  - Arthralgia [Not Recovered/Not Resolved]
  - Rhinorrhoea [Not Recovered/Not Resolved]
  - Oral mucosal erythema [Unknown]

NARRATIVE: CASE EVENT DATE: 20140807
